FAERS Safety Report 24229385 (Version 1)
Quarter: 2024Q3

REPORT INFORMATION
  Report Type: Report from Study
  Country: US (occurrence: US)
  Receive Date: 20240820
  Receipt Date: 20240820
  Transmission Date: 20241016
  Serious: Yes (Hospitalization, Disabling, Other)
  Sender: GILEAD
  Company Number: US-GILEAD-2024-0680422

PATIENT
  Sex: Male

DRUGS (2)
  1. COBICISTAT\ELVITEGRAVIR\EMTRICITABINE\TENOFOVIR [Suspect]
     Active Substance: COBICISTAT\ELVITEGRAVIR\EMTRICITABINE\TENOFOVIR
     Indication: HIV infection
     Dosage: 510 MG, QD
     Route: 048
  2. PREZISTA [Concomitant]
     Active Substance: DARUNAVIR ETHANOLATE
     Dosage: UNKNOWN

REACTIONS (10)
  - Cardiac failure congestive [Recovering/Resolving]
  - Myocardial infarction [Recovered/Resolved with Sequelae]
  - Cardiovascular disorder [Not Recovered/Not Resolved]
  - Illness [Not Recovered/Not Resolved]
  - Cardiac disorder [Not Recovered/Not Resolved]
  - Asthenia [Recovered/Resolved]
  - Expired product administered [Unknown]
  - Product dose omission issue [Not Recovered/Not Resolved]
  - Incorrect dose administered [Unknown]
  - Ill-defined disorder [Unknown]

NARRATIVE: CASE EVENT DATE: 20220101
